FAERS Safety Report 9729824 (Version 3)
Quarter: 2015Q3

REPORT INFORMATION
  Report Type: Spontaneous
  Country: US (occurrence: US)
  Receive Date: 20131204
  Receipt Date: 20150804
  Transmission Date: 20151125
  Serious: No
  Sender: FDA-Public Use
  Company Number: US-GILEAD-2009-0022445

PATIENT
  Age: 69 Year
  Sex: Female

DRUGS (1)
  1. LETAIRIS [Suspect]
     Active Substance: AMBRISENTAN
     Indication: PULMONARY ARTERIAL HYPERTENSION
     Route: 048
     Dates: start: 20090407, end: 20090513

REACTIONS (5)
  - Mood swings [Unknown]
  - Fatigue [Unknown]
  - Fluid retention [Unknown]
  - Dyspnoea [Unknown]
  - Eye irritation [Unknown]
